FAERS Safety Report 21139188 (Version 1)
Quarter: 2022Q3

REPORT INFORMATION
  Report Type: Spontaneous
  Country: US (occurrence: US)
  Receive Date: 20220727
  Receipt Date: 20220727
  Transmission Date: 20221027
  Serious: No
  Sender: FDA-Public Use
  Company Number: US-PFIZER INC-PV202200030048

PATIENT
  Age: 49 Year
  Sex: Female

DRUGS (2)
  1. HYDROXYZINE PAMOATE [Suspect]
     Active Substance: HYDROXYZINE PAMOATE
     Dosage: UNK [0.0590]
  2. CLOBETASOL [Suspect]
     Active Substance: CLOBETASOL
     Dosage: 25 MG

REACTIONS (1)
  - Drug ineffective [Unknown]
